FAERS Safety Report 9580280 (Version 2)
Quarter: 2013Q4

REPORT INFORMATION
  Report Type: Spontaneous
  Country: IT (occurrence: IT)
  Receive Date: 20131002
  Receipt Date: 20131115
  Transmission Date: 20140711
  Serious: Yes (Hospitalization)
  Sender: FDA-Public Use
  Company Number: IT-SA-2013SA095750

PATIENT
  Age: 87 Year
  Sex: Female

DRUGS (6)
  1. LASIX [Suspect]
     Indication: HYPERTENSION
     Route: 048
     Dates: start: 20100101, end: 20130908
  2. LUVION [Suspect]
     Indication: HYPERTENSION
     Route: 048
     Dates: start: 20130401, end: 20130908
  3. PANTORC [Concomitant]
     Dosage: STRENGTH: 20MG
  4. DELTACORTENE [Concomitant]
     Dosage: STRENGTH: 5MG
  5. LACTITOL [Concomitant]
  6. HUMALOG [Concomitant]

REACTIONS (2)
  - Renal failure acute [Recovering/Resolving]
  - Dehydration [Recovering/Resolving]
